FAERS Safety Report 9871672 (Version 1)
Quarter: 2014Q1

REPORT INFORMATION
  Report Type: Spontaneous
  Country: US (occurrence: US)
  Receive Date: 20140205
  Receipt Date: 20140205
  Transmission Date: 20141002
  Serious: No
  Sender: FDA-Public Use
  Company Number: US-SA-2013SA131004

PATIENT
  Age: 10 Year
  Sex: Female

DRUGS (4)
  1. ALLEGRA [Suspect]
     Indication: COUGH
     Dosage: TAKEN FROM: 2 DAYS AGO?DOSE:30 MG/5ML?FREQUENCY: 2 TSP Q12H
     Route: 065
  2. PREDNISONE [Concomitant]
  3. AMOXICILLIN [Concomitant]
  4. OTHER RESPIRATORY SYSTEM PRODUCTS [Concomitant]

REACTIONS (4)
  - Ear infection [Not Recovered/Not Resolved]
  - Cough [Not Recovered/Not Resolved]
  - Somnolence [Not Recovered/Not Resolved]
  - Extra dose administered [Unknown]
